FAERS Safety Report 6742043-9 (Version None)
Quarter: 2010Q2

REPORT INFORMATION
  Report Type: 
  Country: None (occurrence: None)
  Receive Date: 20100526
  Receipt Date: 20100503
  Transmission Date: 20101027
  Serious: Yes (Other)
  Sender: FDA-Public Use
  Company Number: NL-ASTRAZENECA-2010SE22539

PATIENT
  Sex: Male

DRUGS (5)
  1. SEROQUEL [Suspect]
     Indication: FATIGUE
     Route: 048
  2. ZYPREXA [Suspect]
     Indication: FATIGUE
     Route: 065
  3. LEPONEX [Suspect]
     Indication: FATIGUE
     Route: 065
  4. OXAZEPAM [Suspect]
     Indication: FATIGUE
     Route: 065
  5. HALDOL [Suspect]
     Indication: FATIGUE
     Route: 065

REACTIONS (10)
  - AGGRESSION [None]
  - BALANCE DISORDER [None]
  - HEADACHE [None]
  - HOMICIDAL IDEATION [None]
  - INSOMNIA [None]
  - IRRITABILITY [None]
  - NAUSEA [None]
  - SUICIDAL IDEATION [None]
  - VISUAL IMPAIRMENT [None]
  - WEIGHT INCREASED [None]
